FAERS Safety Report 25658603 (Version 5)
Quarter: 2025Q4

REPORT INFORMATION
  Report Type: Report from Study
  Country: US (occurrence: US)
  Receive Date: 20250808
  Receipt Date: 20251024
  Transmission Date: 20260117
  Serious: Yes (Hospitalization)
  Sender: TAKEDA
  Company Number: US-TAKEDA-2025TUS070045

PATIENT
  Sex: Female

DRUGS (8)
  1. LANADELUMAB [Suspect]
     Active Substance: LANADELUMAB
     Indication: Immune system disorder
     Dosage: UNK UNK, Q2WEEKS
     Dates: start: 202507
  2. LANADELUMAB [Suspect]
     Active Substance: LANADELUMAB
     Indication: Prophylaxis
     Dosage: 300 MILLIGRAM/2 MILLILITER, Q2WEEKS
  3. LANADELUMAB [Suspect]
     Active Substance: LANADELUMAB
     Dosage: 300 MILLIGRAM, Q2WEEKS
  4. ICATIBANT ACETATE [Concomitant]
     Active Substance: ICATIBANT ACETATE
     Dosage: UNK
  5. EPINEPHRINE [Concomitant]
     Active Substance: EPINEPHRINE
     Dosage: UNK
  6. STERILE WATER [Concomitant]
     Active Substance: WATER
     Dosage: UNK
  7. RUCONEST [Concomitant]
     Active Substance: CONESTAT ALFA
     Dosage: UNK
  8. SODIUM CHLORIDE [Concomitant]
     Active Substance: SODIUM CHLORIDE
     Dosage: UNK

REACTIONS (2)
  - Hereditary angioedema [Unknown]
  - Weight increased [Unknown]
